FAERS Safety Report 9234487 (Version 1)
Quarter: 2013Q2

REPORT INFORMATION
  Report Type: Spontaneous
  Country: US (occurrence: US)
  Receive Date: 20130416
  Receipt Date: 20130416
  Transmission Date: 20140414
  Serious: No
  Sender: FDA-Public Use
  Company Number: US-BANPHARM-20120218

PATIENT
  Age: 42 Year
  Sex: Male
  Weight: 95.25 kg

DRUGS (4)
  1. ALEVE LIQUID GELS 220 MG [Suspect]
     Dosage: 3 CAPSULES,
     Route: 048
     Dates: start: 20121001, end: 20121001
  2. SINGULAIR [Concomitant]
  3. HYDROXYZINE [Concomitant]
  4. LISINOPRIL [Concomitant]

REACTIONS (2)
  - Hunger [Not Recovered/Not Resolved]
  - Incorrect dose administered [Unknown]
